FAERS Safety Report 4465820-6 (Version None)
Quarter: 2004Q3

REPORT INFORMATION
  Report Type: 
  Country: None (occurrence: None)
  Receive Date: 20040929
  Receipt Date: 20040929
  Transmission Date: 20050211
  Serious: Yes (Hospitalization)
  Sender: FDA-Public Use
  Company Number: None

PATIENT
  Age: 74 Year
  Sex: Male
  Weight: 91.3 kg

DRUGS (1)
  1. SIMVASTATIN [Suspect]
     Indication: MIXED HYPERLIPIDAEMIA
     Dosage: 40 MG ORAL QD
     Route: 048
     Dates: start: 20040201, end: 20040901

REACTIONS (1)
  - BLOOD CREATININE INCREASED [None]
